FAERS Safety Report 23663623 (Version 1)
Quarter: 2024Q1

REPORT INFORMATION
  Report Type: Spontaneous
  Country: US (occurrence: US)
  Receive Date: 20240322
  Receipt Date: 20240322
  Transmission Date: 20240410
  Serious: No
  Sender: FDA-Public Use
  Company Number: US-PFIZER INC-PV202400038577

PATIENT
  Age: 37 Year
  Sex: Male
  Weight: 92.789 kg

DRUGS (1)
  1. BOSULIF [Suspect]
     Active Substance: BOSUTINIB MONOHYDRATE
     Indication: Chronic myeloid leukaemia
     Dosage: 1 TABLET BY MOUTH DAILY
     Route: 048
     Dates: start: 20231212

REACTIONS (1)
  - Rash [Unknown]
